FAERS Safety Report 23293997 (Version 5)
Quarter: 2024Q2

REPORT INFORMATION
  Report Type: Spontaneous
  Country: JP (occurrence: None)
  Receive Date: 20231213
  Receipt Date: 20240628
  Transmission Date: 20240716
  Serious: Yes (Life-Threatening, Hospitalization, Disabling, Other)
  Sender: FDA-Public Use
  Company Number: 2023A274808

PATIENT
  Age: 76 Year
  Sex: Female
  Weight: 37 kg

DRUGS (10)
  1. IMFINZI [Suspect]
     Active Substance: DURVALUMAB
     Indication: Bile duct cancer
     Route: 041
     Dates: start: 20231019, end: 20231019
  2. NEXIUM [Concomitant]
     Active Substance: ESOMEPRAZOLE MAGNESIUM
     Route: 048
     Dates: start: 20230921
  3. GEMCITABINE HYDROCHLORIDE [Concomitant]
     Active Substance: GEMCITABINE HYDROCHLORIDE
     Indication: Bile duct cancer
     Dates: start: 20231019
  4. CISPLATIN [Concomitant]
     Active Substance: CISPLATIN
     Indication: Bile duct cancer
     Dates: start: 20231019
  5. TENELIGLIPTIN [Concomitant]
     Active Substance: TENELIGLIPTIN
     Route: 048
     Dates: start: 20230921
  6. REPAGLINIDE [Concomitant]
     Active Substance: REPAGLINIDE
     Route: 048
     Dates: start: 20230921
  7. TRESIBA [Concomitant]
     Active Substance: INSULIN DEGLUDEC
     Dosage: 3 IU DAILY
     Dates: start: 20230921
  8. PANCRELIPASE [Concomitant]
     Active Substance: PANCRELIPASE
     Route: 048
     Dates: start: 20230921
  9. REBAMIPIDE [Concomitant]
     Active Substance: REBAMIPIDE
     Route: 048
     Dates: start: 20230921
  10. NICORANDIL [Concomitant]
     Active Substance: NICORANDIL
     Route: 048
     Dates: start: 20230921

REACTIONS (7)
  - Immune-mediated myocarditis [Recovering/Resolving]
  - Immune-mediated myasthenia gravis [Not Recovered/Not Resolved]
  - Immune-mediated myositis [Recovering/Resolving]
  - Torsade de pointes [Unknown]
  - Ventricular tachycardia [Unknown]
  - Atrioventricular block complete [Recovering/Resolving]
  - Cardiac ventricular thrombosis [Unknown]

NARRATIVE: CASE EVENT DATE: 20231116
